FAERS Safety Report 6912245-7 (Version None)
Quarter: 2010Q3

REPORT INFORMATION
  Report Type: 
  Country: None (occurrence: None)
  Receive Date: 20100806
  Receipt Date: 20080131
  Transmission Date: 20110219
  Serious: No
  Sender: FDA-Public Use
  Company Number: US-PFIZER INC-2008010899

PATIENT
  Sex: Male
  Weight: 83.91 kg

DRUGS (4)
  1. DETROL LA [Suspect]
     Indication: INCONTINENCE
     Dates: start: 20080130
  2. TAMSULOSIN HCL [Concomitant]
     Indication: NOCTURIA
  3. MONOPRIL [Concomitant]
     Indication: HYPERTENSION
  4. GLYBURIDE [Concomitant]
     Indication: DIABETES MELLITUS

REACTIONS (3)
  - DIZZINESS [None]
  - DRY MOUTH [None]
  - HEADACHE [None]
